FAERS Safety Report 7883312-9 (Version None)
Quarter: 2011Q4

REPORT INFORMATION
  Report Type: 
  Country: None (occurrence: None)
  Receive Date: 20111102
  Receipt Date: 20111101
  Transmission Date: 20120403
  Serious: Yes (Hospitalization)
  Sender: FDA-Public Use
  Company Number: JP-BAYER-2011-105802

PATIENT
  Age: 77 Year
  Sex: Male

DRUGS (2)
  1. NEXAVAR [Suspect]
     Indication: HEPATIC NEOPLASM MALIGNANT
     Dosage: 400 MG, BID
     Route: 048
     Dates: start: 20111019, end: 20111101
  2. NEXAVAR [Suspect]
     Indication: RENAL CELL CARCINOMA

REACTIONS (3)
  - HEPATIC FUNCTION ABNORMAL [None]
  - HEPATIC ENCEPHALOPATHY [None]
  - PYREXIA [None]
